FAERS Safety Report 10027207 (Version 1)
Quarter: 2014Q1

REPORT INFORMATION
  Report Type: Spontaneous
  Country: CN (occurrence: CN)
  Receive Date: 20140321
  Receipt Date: 20140321
  Transmission Date: 20141002
  Serious: Yes (Other)
  Sender: FDA-Public Use
  Company Number: CN-BRISTOL-MYERS SQUIBB COMPANY-20467817

PATIENT
  Age: 48 Year
  Sex: Male

DRUGS (1)
  1. GLUCOPHAGE TABS [Suspect]
     Indication: TYPE 2 DIABETES MELLITUS
     Dosage: 1DF=3 TABLETS DAILY.
     Route: 048
     Dates: start: 2011

REACTIONS (2)
  - Retinal disorder [Unknown]
  - Drug ineffective [Unknown]
